FAERS Safety Report 6263899-2 (Version None)
Quarter: 2009Q3

REPORT INFORMATION
  Report Type: 
  Country: None (occurrence: None)
  Receive Date: 20090710
  Receipt Date: 20090702
  Transmission Date: 20100115
  Serious: Yes (Other)
  Sender: FDA-Public Use
  Company Number: US-ASTRAZENECA-2008UW28137

PATIENT
  Age: 86 Year
  Sex: Male

DRUGS (4)
  1. IRESSA [Suspect]
     Route: 048
  2. HYPERTENSION MEDICATION [Concomitant]
  3. THYROID MEDICATION [Concomitant]
  4. CHOLESTEROL MEDICATION [Concomitant]

REACTIONS (3)
  - ACNE [None]
  - RASH [None]
  - SURGERY [None]
